FAERS Safety Report 8991957 (Version 1)
Quarter: 2012Q4

REPORT INFORMATION
  Report Type: 
  Country: JP (occurrence: JP)
  Receive Date: 20121231
  Receipt Date: 20121231
  Transmission Date: 20130627
  Serious: Yes (Other)
  Sender: FDA-Public Use
  Company Number: JP-009507513-1212JPN011146

PATIENT

DRUGS (2)
  1. PEGINTRON [Suspect]
     Dosage: UNK
     Route: 058
  2. REBETOL [Suspect]
     Dosage: UNK
     Route: 048

REACTIONS (1)
  - Toxic epidermal necrolysis [Unknown]
